FAERS Safety Report 7250248-6 (Version None)
Quarter: 2011Q1

REPORT INFORMATION
  Report Type: 
  Country: None (occurrence: None)
  Receive Date: 20110128
  Receipt Date: 20110125
  Transmission Date: 20110831
  Serious: Yes (Hospitalization, Other)
  Sender: FDA-Public Use
  Company Number: CN-ALLERGAN-1101082US

PATIENT
  Age: 70 Year
  Sex: Male

DRUGS (2)
  1. PRED FORTE [Suspect]
     Indication: PRODUCT USED FOR UNKNOWN INDICATION
  2. LEVOFLOXACIN [Concomitant]
     Indication: POSTOPERATIVE CARE
     Dosage: UNK

REACTIONS (1)
  - INTRAOCULAR PRESSURE INCREASED [None]
